FAERS Safety Report 24106784 (Version 2)
Quarter: 2024Q3

REPORT INFORMATION
  Report Type: Report from Study
  Country: IN (occurrence: IN)
  Receive Date: 20240717
  Receipt Date: 20240723
  Transmission Date: 20241017
  Serious: Yes (Death, Hospitalization, Other)
  Sender: EISAI
  Company Number: IN-Eisai-EC-2024-170142

PATIENT
  Age: 67 Year
  Sex: Male

DRUGS (3)
  1. LENVIMA [Suspect]
     Active Substance: LENVATINIB
     Indication: Hepatocellular carcinoma
     Dosage: FOR A WEEK
     Route: 048
     Dates: start: 20240608, end: 202406
  2. LENVIMA [Suspect]
     Active Substance: LENVATINIB
     Route: 048
     Dates: start: 202406, end: 202406
  3. LENVIMA [Suspect]
     Active Substance: LENVATINIB
     Route: 048
     Dates: start: 202406, end: 20240628

REACTIONS (8)
  - Hepatic failure [Fatal]
  - Hepatic encephalopathy [Fatal]
  - Blood potassium increased [Fatal]
  - Shock [Fatal]
  - Renal failure [Fatal]
  - Hypotension [Unknown]
  - Jaundice [Unknown]
  - Blood sodium decreased [Recovered/Resolved]

NARRATIVE: CASE EVENT DATE: 20240101
